FAERS Safety Report 8099389-4 (Version None)
Quarter: 2012Q1

REPORT INFORMATION
  Report Type: 
  Country: None (occurrence: None)
  Receive Date: 20120129
  Receipt Date: 20110915
  Transmission Date: 20120608
  Serious: No
  Sender: FDA-Public Use
  Company Number: US-ABBOTT-11P-163-0854992-00

PATIENT
  Age: 53 Year
  Sex: Female

DRUGS (13)
  1. ARAVA [Concomitant]
     Indication: SCOLIOSIS
  2. HUMIRA [Suspect]
     Indication: RHEUMATOID ARTHRITIS
     Dates: start: 20110301
  3. LOVASTATIN [Concomitant]
     Indication: HYPERLIPIDAEMIA
  4. IMMUNE GLOBULIN INTRAVENOUS (HUMAN) [Concomitant]
     Indication: PRODUCT USED FOR UNKNOWN INDICATION
     Dosage: BID
  5. PEPCID [Concomitant]
     Indication: DYSPEPSIA
  6. POTASSIUM [Concomitant]
     Indication: MINERAL SUPPLEMENTATION
  7. VITAMIN D [Concomitant]
     Route: 042
  8. LEVOTHYROXINE SODIUM [Concomitant]
     Indication: PRODUCT USED FOR UNKNOWN INDICATION
  9. VITAMIN D [Concomitant]
     Indication: VITAMIN SUPPLEMENTATION
  10. LISINOPRIL/HYDROCHLOORTHIAZIDE [Concomitant]
     Indication: HYPERTENSION
     Dosage: 20/25 MG EVERY DAY
  11. ARAVA [Concomitant]
     Indication: RHEUMATOID ARTHRITIS
  12. METOPROLOL TARTRATE [Concomitant]
     Indication: HYPERTENSION
  13. PRILOSEC [Concomitant]
     Indication: DYSPEPSIA

REACTIONS (1)
  - SINUSITIS [None]
